FAERS Safety Report 25638637 (Version 1)
Quarter: 2025Q3

REPORT INFORMATION
  Report Type: Spontaneous
  Country: US (occurrence: US)
  Receive Date: 20250804
  Receipt Date: 20250804
  Transmission Date: 20251021
  Serious: No
  Sender: AURINIA PHARMACEUTICALS
  Company Number: US-AURINIA PHARMACEUTICALS INC.-AUR-008356

PATIENT
  Age: 50 Year
  Sex: Female

DRUGS (1)
  1. LUPKYNIS [Suspect]
     Active Substance: VOCLOSPORIN
     Indication: Lupus nephritis
     Dosage: 15.8 MILLIGRAM, BID
     Route: 048
     Dates: start: 20250228

REACTIONS (7)
  - Gingival pain [Unknown]
  - Gingival erythema [Unknown]
  - Gingival swelling [Unknown]
  - Cardiac discomfort [Recovered/Resolved]
  - Chest discomfort [Recovered/Resolved]
  - Noninfective gingivitis [Unknown]
  - Product dose omission in error [Unknown]

NARRATIVE: CASE EVENT DATE: 20250228
